FAERS Safety Report 14659425 (Version 1)
Quarter: 2018Q1

REPORT INFORMATION
  Report Type: Spontaneous
  Country: JP (occurrence: JP)
  Receive Date: 20180320
  Receipt Date: 20180320
  Transmission Date: 20180509
  Serious: Yes (Life-Threatening, Hospitalization, Other)
  Sender: FDA-Public Use
  Company Number: JP-BAYER-2018-033948

PATIENT
  Age: 65 Year
  Sex: Male
  Weight: 84.8 kg

DRUGS (9)
  1. JUVELA [Concomitant]
     Active Substance: .ALPHA.-TOCOPHEROL\RETINOL
     Dosage: DAILY DOSE 200 MG
     Route: 048
     Dates: start: 20150401
  2. GRANISETRON [Concomitant]
     Active Substance: GRANISETRON
     Indication: PROPHYLAXIS
     Dosage: DAILY DOSE 100 MG
     Route: 042
     Dates: start: 20151204
  3. BAYASPIRIN 100 MG [Suspect]
     Active Substance: ASPIRIN
     Indication: ANGINA PECTORIS
     Dosage: DAILY DOSE 100 MG
     Route: 048
     Dates: start: 20150401, end: 20151208
  4. HYDROCHLOROTHIAZIDE W/TELMISARTAN [Concomitant]
     Active Substance: HYDROCHLOROTHIAZIDE\TELMISARTAN
     Dosage: DAILY DOSE 1 DF
     Route: 048
     Dates: start: 201504
  5. DOXAZOSIN [Concomitant]
     Active Substance: DOXAZOSIN\DOXAZOSIN MESYLATE
     Dosage: DAILY DOSE 1 DF
     Route: 048
     Dates: start: 20150401
  6. RABEPRAZOLE SODIUM. [Concomitant]
     Active Substance: RABEPRAZOLE SODIUM
     Dosage: DAILY DOSE 10 MG
     Route: 048
     Dates: start: 20150401
  7. TELMISARTAN. [Concomitant]
     Active Substance: TELMISARTAN
  8. PITAVASTATIN. [Concomitant]
     Active Substance: PITAVASTATIN CALCIUM
     Dosage: DAILY DOSE 1 DF
     Route: 048
     Dates: start: 20150401
  9. UROMITEXAN [Concomitant]
     Active Substance: MESNA
     Indication: PROPHYLAXIS
     Dosage: DAILY DOSE 1200 MG
     Route: 042
     Dates: start: 20151204

REACTIONS (2)
  - Granulomatosis with polyangiitis [Unknown]
  - Pulmonary alveolar haemorrhage [Recovered/Resolved]

NARRATIVE: CASE EVENT DATE: 20151121
